FAERS Safety Report 5030421-8 (Version None)
Quarter: 2006Q2

REPORT INFORMATION
  Report Type: 
  Country: None (occurrence: None)
  Receive Date: 20060620
  Receipt Date: 20060320
  Transmission Date: 20061013
  Serious: Yes (Death)
  Sender: FDA-Public Use
  Company Number: US-BRISTOL-MYERS SQUIBB COMPANY-13320981

PATIENT
  Age: 50 Year
  Sex: Male

DRUGS (1)
  1. MEGACE [Suspect]
     Indication: MALIGNANT NEOPLASM PROGRESSION
     Route: 048

REACTIONS (2)
  - COLON CANCER [None]
  - MALIGNANT NEOPLASM PROGRESSION [None]
